FAERS Safety Report 10509029 (Version 4)
Quarter: 2015Q1

REPORT INFORMATION
  Report Type: Spontaneous
  Country: US (occurrence: US)
  Receive Date: 20141009
  Receipt Date: 20150313
  Transmission Date: 20150720
  Serious: Yes (Hospitalization)
  Sender: FDA-Public Use
  Company Number: US-PFIZER INC-2014275684

PATIENT
  Age: 51 Year
  Sex: Female

DRUGS (26)
  1. LYRICA [Suspect]
     Active Substance: PREGABALIN
     Indication: PARAESTHESIA
  2. LANTUS [Concomitant]
     Active Substance: INSULIN GLARGINE
     Dosage: 28 IU, 1X/DAY (AT BEDTIME)
  3. LYRICA [Suspect]
     Active Substance: PREGABALIN
     Indication: FIBROMYALGIA
  4. LYRICA [Suspect]
     Active Substance: PREGABALIN
     Indication: ARTHRALGIA
  5. FISH OIL [Concomitant]
     Active Substance: FISH OIL
     Dosage: 2000 MG (2X1000 MG), UNK
  6. CARVEDILOL. [Concomitant]
     Active Substance: CARVEDILOL
     Dosage: 12.5 MG, 2X/DAY
     Route: 048
  7. OMEPRAZOLE. [Concomitant]
     Active Substance: OMEPRAZOLE
     Dosage: 20 MG, 1X/DAY
     Route: 048
  8. LYRICA [Suspect]
     Active Substance: PREGABALIN
     Indication: PAIN
  9. EFFEXOR [Concomitant]
     Active Substance: VENLAFAXINE HYDROCHLORIDE
     Dosage: 37.5 MG, 1X/DAY
     Route: 048
  10. ISOSORBIDE MN [Concomitant]
     Active Substance: ISOSORBIDE MONONITRATE
     Dosage: 30 MG, 1X/DAY (EVERY AM)
  11. GEMFIBROZIL. [Concomitant]
     Active Substance: GEMFIBROZIL
     Dosage: 600 MG, 2X/DAY
  12. ZYRTEC [Concomitant]
     Active Substance: CETIRIZINE HYDROCHLORIDE
     Dosage: 10 MG, 1X/DAY
     Route: 048
  13. BABY ASPIRIN [Concomitant]
     Active Substance: ASPIRIN
     Dosage: 2 DF, UNK
  14. SYNTHROID [Concomitant]
     Active Substance: LEVOTHYROXINE SODIUM
     Dosage: 112 MG, 1X/DAY  (EVERY AM)
  15. AMITRIPTYLINE [Concomitant]
     Active Substance: AMITRIPTYLINE
     Indication: SLEEP DISORDER
     Dosage: 75 MG, 1X/DAY (AT BEDTIME)
     Route: 048
  16. HUMALOG [Concomitant]
     Active Substance: INSULIN LISPRO
     Dosage: USE SLIDING SCALE
  17. BETAMETHASONE DIPROPIONATE. [Concomitant]
     Active Substance: BETAMETHASONE DIPROPIONATE
     Indication: ECZEMA
     Dosage: UNK (0.05 MG%)
  18. GLIPIZIDE XL [Concomitant]
     Active Substance: GLIPIZIDE
     Dosage: 5 MG, 1X/DAY (EVERY AM)
  19. PULMICORT NEBULIZER [Concomitant]
     Dosage: UNK
     Route: 045
  20. LASIX [Concomitant]
     Active Substance: FUROSEMIDE
     Dosage: 20 MG, 1X/DAY
     Route: 048
  21. LYRICA [Suspect]
     Active Substance: PREGABALIN
     Indication: NEUROPATHY PERIPHERAL
     Dosage: 150 MG, 3X/DAY
     Route: 048
     Dates: start: 2010
  22. LOSARTAN [Concomitant]
     Active Substance: LOSARTAN
     Dosage: 12.5 MG, 1X/DAY
     Route: 048
  23. ATORVASTATIN [Concomitant]
     Active Substance: ATORVASTATIN
     Dosage: 80 MG, 1X/DAY
     Route: 048
  24. METFORMIN [Concomitant]
     Active Substance: METFORMIN HYDROCHLORIDE
     Dosage: 850 MG, 2X/DAY(MORNING AND EVENING)
     Route: 048
  25. MVI [Concomitant]
     Active Substance: VITAMINS
     Dosage: UNK, 1X/DAY
     Route: 048
  26. FLUTICASONE [Concomitant]
     Active Substance: FLUTICASONE\FLUTICASONE PROPIONATE
     Dosage: 2 DF (2 PUFFS), UNK

REACTIONS (6)
  - Seizure [Recovered/Resolved]
  - Product use issue [Unknown]
  - Blood glucose increased [Recovered/Resolved]
  - Cardiac failure congestive [Not Recovered/Not Resolved]
  - Condition aggravated [Not Recovered/Not Resolved]
  - Drug ineffective [Unknown]

NARRATIVE: CASE EVENT DATE: 2010
